FAERS Safety Report 18774375 (Version 1)
Quarter: 2021Q1

REPORT INFORMATION
  Report Type: Spontaneous
  Country: CN (occurrence: CN)
  Receive Date: 20210122
  Receipt Date: 20210122
  Transmission Date: 20210419
  Serious: Yes (Other)
  Sender: FDA-Public Use
  Company Number: CN-009507513-2101CHN008196

PATIENT
  Age: 23 Month
  Sex: Male

DRUGS (2)
  1. HYCAMTIN [Concomitant]
     Active Substance: TOPOTECAN HYDROCHLORIDE
     Indication: NEUROBLASTOMA
     Dosage: 0.75 MG/M^2/D, FOR 5 DAYS, EVERY 3 WEEKS AS A CYCLE
     Route: 041
  2. TEMODAL [Suspect]
     Active Substance: TEMOZOLOMIDE
     Indication: NEUROBLASTOMA
     Dosage: 150 MG/M2/DAY FOR 5 DAYS, EVERY 3 WEEKS AS A CYCLE
     Route: 048

REACTIONS (3)
  - Off label use [Unknown]
  - Product use issue [Unknown]
  - Epilepsy [Recovered/Resolved]
